FAERS Safety Report 9687495 (Version 2)
Quarter: 2014Q2

REPORT INFORMATION
  Report Type: Spontaneous
  Country: CA (occurrence: CA)
  Receive Date: 20131114
  Receipt Date: 20140509
  Transmission Date: 20141212
  Serious: Yes (Hospitalization, Other)
  Sender: FDA-Public Use
  Company Number: CA-AMGEN-CANSP2013079499

PATIENT
  Age: 87 Year
  Sex: Female

DRUGS (5)
  1. PROLIA [Suspect]
     Indication: OSTEOPOROSIS POSTMENOPAUSAL
     Dosage: 60 MG, UNK
     Route: 065
     Dates: start: 20131009
  2. ATORVASTATIN [Concomitant]
     Dosage: 10 MG, UNK
  3. CALCIUM [Concomitant]
     Dosage: UNK UNK, BID
  4. RANITIDINE [Concomitant]
  5. DILTIAZEM [Concomitant]
     Dosage: 1000 (ONCE A WEEK 10000 UNITS)

REACTIONS (6)
  - Dizziness [Unknown]
  - Nausea [Unknown]
  - Vomiting [Unknown]
  - Dysstasia [Unknown]
  - Vertigo [Recovered/Resolved]
  - Chest pain [Unknown]
